FAERS Safety Report 24887156 (Version 1)
Quarter: 2025Q1

REPORT INFORMATION
  Report Type: Spontaneous
  Country: GB (occurrence: GB)
  Receive Date: 20250127
  Receipt Date: 20250127
  Transmission Date: 20250409
  Serious: Yes (Other)
  Sender: AUROBINDO
  Company Number: GB-MHRA-MED-202501102243111550-SNPDT

PATIENT
  Age: 58 Year
  Sex: Female
  Weight: 166 kg

DRUGS (2)
  1. LAMOTRIGINE [Suspect]
     Active Substance: LAMOTRIGINE
     Indication: Adverse drug reaction
     Route: 065
  2. METHOTREXATE [Concomitant]
     Active Substance: METHOTREXATE
     Indication: Juvenile idiopathic arthritis
     Route: 065
     Dates: start: 20150101

REACTIONS (2)
  - Blood iron decreased [Unknown]
  - Transferrin saturation [Unknown]

NARRATIVE: CASE EVENT DATE: 20240602
